FAERS Safety Report 14084033 (Version 1)
Quarter: 2017Q4

REPORT INFORMATION
  Report Type: Spontaneous
  Country: US (occurrence: US)
  Receive Date: 20171013
  Receipt Date: 20171013
  Transmission Date: 20180321
  Serious: Yes (Death)
  Sender: FDA-Public Use
  Company Number: None

PATIENT
  Age: 45 Year
  Sex: Female
  Weight: 42.75 kg

DRUGS (5)
  1. EDARAVONE [Suspect]
     Active Substance: EDARAVONE
     Indication: AMYOTROPHIC LATERAL SCLEROSIS
     Dosage: ?          OTHER FREQUENCY:PER INSERT;?
     Route: 042
  2. COENZYME Q10 [Concomitant]
     Active Substance: UBIDECARENONE
  3. IBUPROFEN. [Concomitant]
     Active Substance: IBUPROFEN
  4. TEMAZEPAM. [Concomitant]
     Active Substance: TEMAZEPAM
  5. RILUZOLE. [Concomitant]
     Active Substance: RILUZOLE

REACTIONS (3)
  - Cardiac arrest [None]
  - Aspiration [None]
  - Status epilepticus [None]

NARRATIVE: CASE EVENT DATE: 20171008
